FAERS Safety Report 14323442 (Version 1)
Quarter: 2017Q4

REPORT INFORMATION
  Report Type: Spontaneous
  Country: BR (occurrence: BR)
  Receive Date: 20171226
  Receipt Date: 20171226
  Transmission Date: 20180321
  Serious: Yes (Other)
  Sender: FDA-Public Use
  Company Number: BR-ALKEM LABORATORIES LIMITED-BR-ALKEM-2017-01393

PATIENT
  Age: 40 Year
  Sex: Female

DRUGS (3)
  1. MYCOPHENOLATE MOFETIL. [Suspect]
     Active Substance: MYCOPHENOLATE MOFETIL
     Indication: IMMUNOSUPPRESSION
     Dosage: 2 G, QD
     Route: 065
  2. PREDNISONE. [Suspect]
     Active Substance: PREDNISONE
     Indication: IMMUNOSUPPRESSION
     Dosage: 10 MG, QD
     Route: 065
  3. HYDROXYCHLOROQUINE [Suspect]
     Active Substance: HYDROXYCHLOROQUINE
     Indication: IMMUNOSUPPRESSION
     Dosage: 400 MG, QD
     Route: 065

REACTIONS (8)
  - Hyperferritinaemia [Unknown]
  - Splenomegaly [Unknown]
  - Histiocytosis haematophagic [Unknown]
  - Hypofibrinogenaemia [Unknown]
  - Pyrexia [Unknown]
  - Histoplasmosis [Unknown]
  - Pancytopenia [Unknown]
  - Hypertriglyceridaemia [Unknown]
